FAERS Safety Report 8815843 (Version 2)
Quarter: 2012Q4

REPORT INFORMATION
  Report Type: 
  Country: US (occurrence: US)
  Receive Date: 20120928
  Receipt Date: 20121009
  Transmission Date: 20130627
  Serious: No
  Sender: FDA-Public Use
  Company Number: US-ASTRAZENECA-2012SE74153

PATIENT
  Age: 71 Year
  Sex: Female

DRUGS (1)
  1. CRESTOR [Suspect]
     Route: 048

REACTIONS (8)
  - Eye disorder [Unknown]
  - Limb discomfort [Unknown]
  - Burning sensation [Unknown]
  - Nervousness [Unknown]
  - Anxiety [Unknown]
  - Pruritus [Unknown]
  - Pain in extremity [Unknown]
  - Memory impairment [Unknown]
